FAERS Safety Report 16055559 (Version 1)
Quarter: 2019Q1

REPORT INFORMATION
  Report Type: Spontaneous
  Country: US (occurrence: US)
  Receive Date: 20190311
  Receipt Date: 20190311
  Transmission Date: 20190418
  Serious: No
  Sender: FDA-Public Use
  Company Number: PHEH2019US009540

PATIENT
  Sex: Male

DRUGS (1)
  1. METHYLPREDNISOLONE SANDOZ [Suspect]
     Active Substance: METHYLPREDNISOLONE
     Indication: POLYMYALGIA RHEUMATICA
     Dosage: UNK
     Route: 065

REACTIONS (2)
  - Pain [Unknown]
  - Peripheral swelling [Unknown]
